FAERS Safety Report 8581650-8 (Version None)
Quarter: 2012Q3

REPORT INFORMATION
  Report Type: 
  Country: None (occurrence: None)
  Receive Date: 20120809
  Receipt Date: 20120801
  Transmission Date: 20120928
  Serious: Yes (Hospitalization)
  Sender: FDA-Public Use
  Company Number: JP-VERTEX PHARMACEUTICALS INC.-AE-2012-011607

PATIENT
  Age: 61 Year
  Sex: Female

DRUGS (7)
  1. LEVOTHYROXINE SODIUM [Concomitant]
     Route: 048
  2. RABEPRAZOLE SODIUM [Concomitant]
     Route: 048
  3. TELAVIC (TELAPREVIR) [Suspect]
     Indication: HEPATITIS C
     Route: 048
     Dates: start: 20120502, end: 20120627
  4. PEGINTERFERON ALFA-2B [Concomitant]
     Route: 058
     Dates: end: 20120625
  5. ALLOPURINOL [Concomitant]
     Route: 048
  6. RIBAVIRIN [Concomitant]
     Route: 048
     Dates: end: 20120627
  7. DIOVAN [Concomitant]
     Route: 048

REACTIONS (1)
  - DIZZINESS [None]
